FAERS Safety Report 6546839-8 (Version None)
Quarter: 2010Q1

REPORT INFORMATION
  Report Type: 
  Country: None (occurrence: None)
  Receive Date: 20100114
  Receipt Date: 20091007
  Transmission Date: 20100710
  Serious: No
  Sender: FDA-Public Use
  Company Number: 2009BM000254

PATIENT
  Sex: Female

DRUGS (2)
  1. KUVAN [Suspect]
     Indication: PHENYLKETONURIA
     Dosage: 1000 MG;QD;PO ; 1000 MG;QD;PO
     Route: 048
     Dates: start: 20081001, end: 20090901
  2. KUVAN [Suspect]
     Indication: PHENYLKETONURIA
     Dosage: 1000 MG;QD;PO ; 1000 MG;QD;PO
     Route: 048
     Dates: start: 20090901

REACTIONS (4)
  - DRUG EXPOSURE DURING PREGNANCY [None]
  - HEADACHE [None]
  - NAUSEA [None]
  - VOMITING [None]
